FAERS Safety Report 14139820 (Version 1)
Quarter: 2017Q4

REPORT INFORMATION
  Report Type: Spontaneous
  Country: IT (occurrence: IT)
  Receive Date: 20171030
  Receipt Date: 20171030
  Transmission Date: 20180321
  Serious: Yes (Hospitalization, Other)
  Sender: FDA-Public Use
  Company Number: IT-ALEMBIC PHARMACUETICALS LIMITED-2017SCAL000833

PATIENT

DRUGS (2)
  1. LAMOTRIGINE. [Suspect]
     Active Substance: LAMOTRIGINE
     Indication: BIPOLAR DISORDER
     Dosage: 1 G, UNK BOLOUS
  2. LAMOTRIGINE. [Suspect]
     Active Substance: LAMOTRIGINE
     Indication: DEPRESSIVE SYMPTOM

REACTIONS (10)
  - Mucosal ulceration [Recovering/Resolving]
  - Candida test positive [Unknown]
  - Rash maculo-papular [Recovering/Resolving]
  - Conjunctivitis [Recovering/Resolving]
  - Mouth ulceration [Recovering/Resolving]
  - Pain [Recovering/Resolving]
  - Stevens-Johnson syndrome [Recovering/Resolving]
  - Retinal detachment [Unknown]
  - Blister [Recovering/Resolving]
  - Pyrexia [Recovering/Resolving]
